FAERS Safety Report 5073111-8 (Version None)
Quarter: 2006Q3

REPORT INFORMATION
  Report Type: 
  Country: None (occurrence: None)
  Receive Date: 20060802
  Receipt Date: 20060721
  Transmission Date: 20061208
  Serious: Yes (Other)
  Sender: FDA-Public Use
  Company Number: CHPA2006US07155

PATIENT
  Sex: Female
  Weight: 86.2 kg

DRUGS (1)
  1. EXCEDRIN (MIGRAINE) [Suspect]
     Indication: MIGRAINE
     Dosage: 2 DF, TWICE IN ONE WEEK, ORAL
     Route: 048

REACTIONS (1)
  - FOREIGN BODY TRAUMA [None]
